FAERS Safety Report 5809944-7 (Version None)
Quarter: 2008Q3

REPORT INFORMATION
  Report Type: 
  Country: None (occurrence: None)
  Receive Date: 20080714
  Receipt Date: 20080714
  Transmission Date: 20090109
  Serious: Yes (Other)
  Sender: FDA-Public Use
  Company Number: None

PATIENT
  Age: 49 Year
  Sex: Female
  Weight: 90.7194 kg

DRUGS (1)
  1. LEVAQUIN [Suspect]
     Indication: SINUSITIS
     Dosage: TWICE A DAY PO
     Route: 048
     Dates: start: 20080115, end: 20080119

REACTIONS (3)
  - PAIN [None]
  - PAIN OF SKIN [None]
  - TRIGGER FINGER [None]
